FAERS Safety Report 8405984-2 (Version None)
Quarter: 2012Q2

REPORT INFORMATION
  Report Type: 
  Country: None (occurrence: None)
  Receive Date: 20120604
  Receipt Date: 20120525
  Transmission Date: 20120825
  Serious: Yes (Hospitalization, Other)
  Sender: FDA-Public Use
  Company Number: CA-US-EMD SERONO, INC.-7069324

PATIENT
  Sex: Female

DRUGS (2)
  1. REBIF [Suspect]
     Route: 058
     Dates: end: 20120418
  2. REBIF [Suspect]
     Indication: MULTIPLE SCLEROSIS
     Route: 058
     Dates: start: 19950801, end: 20120401

REACTIONS (5)
  - INFLUENZA LIKE ILLNESS [None]
  - OSTEOMYELITIS [None]
  - COLORECTAL CANCER [None]
  - ALOPECIA [None]
  - INJECTION SITE PAIN [None]
